FAERS Safety Report 9080594 (Version 1)
Quarter: 2013Q1

REPORT INFORMATION
  Report Type: Spontaneous
  Country: US (occurrence: US)
  Receive Date: 20130131
  Receipt Date: 20130131
  Transmission Date: 20140127
  Serious: No
  Sender: FDA-Public Use
  Company Number: US-009507513-1108USA00220

PATIENT
  Age: 75 None
  Sex: Male

DRUGS (2)
  1. PROSCAR [Suspect]
     Indication: BENIGN PROSTATIC HYPERPLASIA
     Dosage: 5 MG, QD
     Route: 048
     Dates: start: 201102
  2. FLOMAX (MORNIFLUMATE) [Concomitant]

REACTIONS (3)
  - Scintillating scotoma [Not Recovered/Not Resolved]
  - Neutrophil count decreased [Unknown]
  - Neutrophil count decreased [Unknown]
